FAERS Safety Report 16485142 (Version 1)
Quarter: 2019Q2

REPORT INFORMATION
  Report Type: Spontaneous
  Country: FR (occurrence: FR)
  Receive Date: 20190627
  Receipt Date: 20190627
  Transmission Date: 20190711
  Serious: Yes (Other)
  Sender: FDA-Public Use
  Company Number: FR-MYLANLABS-2019M1059663

PATIENT
  Age: 1 Day
  Sex: Male
  Weight: 2 kg

DRUGS (2)
  1. NORADRENALINE MYLAN [Suspect]
     Active Substance: NOREPINEPHRINE\NOREPINEPHRINE BITARTRATE
     Indication: CARDIOVASCULAR INSUFFICIENCY
     Dosage: 1.6 MICROGRAM, QMINUTE
     Route: 042
     Dates: start: 20181212, end: 20181212
  2. PEDIAVEN AP HP NOUVEAU NE 1 [Concomitant]
     Dosage: UNK

REACTIONS (3)
  - Incorrect dose administered [Recovered/Resolved]
  - Skin necrosis [Recovering/Resolving]
  - Incorrect route of product administration [Recovered/Resolved]

NARRATIVE: CASE EVENT DATE: 20181212
